FAERS Safety Report 19460008 (Version 1)
Quarter: 2021Q2

REPORT INFORMATION
  Report Type: Report from Study
  Country: CN (occurrence: CN)
  Receive Date: 20210625
  Receipt Date: 20210625
  Transmission Date: 20210717
  Serious: Yes (Hospitalization)
  Sender: FDA-Public Use
  Company Number: CN-ROCHE-2854190

PATIENT
  Age: 62 Year
  Sex: Female
  Weight: 42.5 kg

DRUGS (3)
  1. DOCETAXEL. [Suspect]
     Active Substance: DOCETAXEL
     Indication: BREAST CANCER METASTATIC
     Route: 042
     Dates: start: 20210527, end: 20210527
  2. TRASTUZUMAB. [Suspect]
     Active Substance: TRASTUZUMAB
     Indication: BREAST CANCER METASTATIC
     Route: 041
     Dates: start: 20210527, end: 20210527
  3. PYROTINIB MALEATE. [Suspect]
     Active Substance: PYROTINIB MALEATE
     Indication: BREAST CANCER METASTATIC
     Route: 048
     Dates: start: 20210527

REACTIONS (5)
  - White blood cell count decreased [Not Recovered/Not Resolved]
  - Neutrophil count decreased [Not Recovered/Not Resolved]
  - Diarrhoea [Recovering/Resolving]
  - Erythromelalgia [Not Recovered/Not Resolved]
  - Pyrexia [Not Recovered/Not Resolved]

NARRATIVE: CASE EVENT DATE: 20210601
